FAERS Safety Report 9361164 (Version 1)
Quarter: 2013Q2

REPORT INFORMATION
  Report Type: Spontaneous
  Country: US (occurrence: None)
  Receive Date: 20130618
  Receipt Date: 20130618
  Transmission Date: 20140414
  Serious: Yes (Hospitalization, Other)
  Sender: FDA-Public Use
  Company Number: TPA2013A05141

PATIENT
  Age: 56 Year
  Sex: Male
  Weight: 77.11 kg

DRUGS (2)
  1. DEXILANT (DEXLANSOPRAZOLE) [Suspect]
     Indication: HERNIA PAIN
     Dosage: 1 IN 1 D, PER ORAL
     Route: 048
     Dates: end: 20130612
  2. WARFARIN (WARFARIN) [Suspect]

REACTIONS (10)
  - Pulmonary thrombosis [None]
  - Intestinal perforation [None]
  - Nephrolithiasis [None]
  - Infection [None]
  - Upper respiratory tract infection [None]
  - Hip surgery [None]
  - Hip arthroplasty [None]
  - International normalised ratio abnormal [None]
  - Off label use [None]
  - Drug dispensing error [None]
